FAERS Safety Report 9367382 (Version 2)
Quarter: 2013Q3

REPORT INFORMATION
  Report Type: Spontaneous
  Country: US (occurrence: US)
  Receive Date: 20130625
  Receipt Date: 20130830
  Transmission Date: 20140515
  Serious: Yes (Hospitalization, Other)
  Sender: FDA-Public Use
  Company Number: US-JNJFOC-20130612113

PATIENT
  Sex: Female
  Weight: 78.02 kg

DRUGS (5)
  1. REMICADE [Suspect]
     Indication: COLITIS ULCERATIVE
     Route: 042
     Dates: start: 20111201, end: 20121129
  2. REMICADE [Suspect]
     Indication: CROHN^S DISEASE
     Route: 042
     Dates: start: 20111201, end: 20121129
  3. HUMIRA [Suspect]
     Indication: COLITIS ULCERATIVE
     Route: 058
     Dates: start: 201301, end: 201306
  4. LIALDA [Concomitant]
     Indication: COLITIS ULCERATIVE
     Dosage: 4 PILLS DAILY
     Route: 065
     Dates: start: 201112
  5. PAXIL [Concomitant]
     Indication: DEPRESSION
     Route: 065

REACTIONS (2)
  - Ependymoma [Recovering/Resolving]
  - Rash [Recovered/Resolved]
